FAERS Safety Report 5326317-4 (Version None)
Quarter: 2007Q2

REPORT INFORMATION
  Report Type: 
  Country: None (occurrence: None)
  Receive Date: 20070514
  Receipt Date: 20070514
  Transmission Date: 20071010
  Serious: Yes (Other)
  Sender: FDA-Public Use
  Company Number: None

PATIENT
  Age: 7 Year
  Sex: Male
  Weight: 15.8759 kg

DRUGS (4)
  1. CLINDAMYCIN 75MG/5ML GRANULES UPJOHN [Suspect]
     Indication: STREPTOCOCCAL INFECTION
     Dosage: 5ML THREE TIMES DAILY PO
     Route: 048
     Dates: start: 20070504, end: 20070514
  2. AMOXICILLIAN [Concomitant]
  3. CEFZIL [Concomitant]
  4. CLINDAMYCIN HCL [Concomitant]

REACTIONS (4)
  - CHILLS [None]
  - HEADACHE [None]
  - PRURITUS [None]
  - RASH MACULO-PAPULAR [None]
